FAERS Safety Report 7654670-5 (Version None)
Quarter: 2011Q3

REPORT INFORMATION
  Report Type: 
  Country: None (occurrence: None)
  Receive Date: 20110804
  Receipt Date: 20110728
  Transmission Date: 20111222
  Serious: Yes (Hospitalization)
  Sender: FDA-Public Use
  Company Number: US-BIOGENIDEC-2011BI024913

PATIENT
  Age: 42 Year
  Sex: Female

DRUGS (3)
  1. AMPYRA [Concomitant]
  2. AVONEX [Concomitant]
     Indication: MULTIPLE SCLEROSIS
     Route: 030
     Dates: start: 20100501
  3. TYSABRI [Suspect]
     Indication: MULTIPLE SCLEROSIS
     Route: 042
     Dates: start: 20100517

REACTIONS (10)
  - KLEBSIELLA BACTERAEMIA [None]
  - VAGINAL DISCHARGE [None]
  - NIGHT SWEATS [None]
  - VULVOVAGINAL BURNING SENSATION [None]
  - BALANCE DISORDER [None]
  - NERVOUSNESS [None]
  - URINARY TRACT INFECTION [None]
  - INAPPROPRIATE AFFECT [None]
  - ABDOMINAL DISTENSION [None]
  - FATIGUE [None]
